FAERS Safety Report 18435461 (Version 2)
Quarter: 2021Q1

REPORT INFORMATION
  Report Type: Other
  Country: CA (occurrence: CA)
  Receive Date: 20201027
  Receipt Date: 20210208
  Transmission Date: 20210419
  Serious: Yes (Hospitalization, Other)
  Sender: FDA-Public Use
  Company Number: CA-CELLTRION INC.-2020CA029328

PATIENT

DRUGS (15)
  1. KETAMINE [Concomitant]
     Active Substance: KETAMINE
  2. NIFEDIPINE. [Concomitant]
     Active Substance: NIFEDIPINE
  3. PANCREATIN [Concomitant]
     Active Substance: PANCRELIPASE
  4. PREGABALIN. [Concomitant]
     Active Substance: PREGABALIN
  5. DESVENLAFAXINE SUCCINATE. [Concomitant]
     Active Substance: DESVENLAFAXINE SUCCINATE
  6. HYDROXYCHLOROQUINE SULFATE. [Concomitant]
     Active Substance: HYDROXYCHLOROQUINE SULFATE
  7. RITUXIMAB (UNKNOWN) [Suspect]
     Active Substance: RITUXIMAB
     Indication: RHEUMATOID ARTHRITIS
     Dosage: 1 EVERY 15 DAYS
     Route: 042
  8. MEMANTINE. [Concomitant]
     Active Substance: MEMANTINE
  9. ONDANSETRON [Concomitant]
     Active Substance: ONDANSETRON
  10. ESOMEPRAZOLE. [Concomitant]
     Active Substance: ESOMEPRAZOLE MAGNESIUM
  11. DESIPRAMINE [Concomitant]
     Active Substance: DESIPRAMINE
  12. EPLERENONE. [Concomitant]
     Active Substance: EPLERENONE
  13. PANTOLOC [PANTOPRAZOLE] [Concomitant]
     Active Substance: PANTOPRAZOLE SODIUM
  14. PULMICORT TURBUHALER [Concomitant]
     Active Substance: BUDESONIDE
  15. SYNTHROID [Concomitant]
     Active Substance: LEVOTHYROXINE SODIUM

REACTIONS (5)
  - Vasospasm [Not Recovered/Not Resolved]
  - Hypertension [Not Recovered/Not Resolved]
  - Diabetes mellitus [Not Recovered/Not Resolved]
  - Pancreatitis [Not Recovered/Not Resolved]
  - Off label use [Unknown]
